FAERS Safety Report 17026002 (Version 1)
Quarter: 2019Q4

REPORT INFORMATION
  Report Type: Spontaneous
  Country: GB (occurrence: GB)
  Receive Date: 20191113
  Receipt Date: 20191113
  Transmission Date: 20200122
  Serious: Yes (Other)
  Sender: FDA-Public Use
  Company Number: GB-PFIZER INC-2019483640

PATIENT
  Age: 55 Year
  Sex: Female

DRUGS (1)
  1. PREGABALIN. [Suspect]
     Active Substance: PREGABALIN
     Indication: GENERALISED ANXIETY DISORDER
     Dosage: 150 MG, DAILY
     Route: 048
     Dates: end: 20180207

REACTIONS (4)
  - Anxiety disorder [Unknown]
  - Muscle atrophy [Not Recovered/Not Resolved]
  - Exercise tolerance decreased [Unknown]
  - Asthenia [Unknown]
